FAERS Safety Report 8557665-2 (Version None)
Quarter: 2012Q3

REPORT INFORMATION
  Report Type: 
  Country: None (occurrence: None)
  Receive Date: 20120801
  Receipt Date: 20120718
  Transmission Date: 20120928
  Serious: No
  Sender: FDA-Public Use
  Company Number: JP-ELI_LILLY_AND_COMPANY-JP201207006553

PATIENT
  Age: 65 Year
  Sex: Male

DRUGS (1)
  1. CYMBALTA [Suspect]
     Indication: DIABETIC NEUROPATHY
     Dosage: 40 MG, QD
     Route: 048
     Dates: start: 20120417, end: 20120615

REACTIONS (1)
  - HEPATIC FUNCTION ABNORMAL [None]
